FAERS Safety Report 4865486-7 (Version None)
Quarter: 2005Q4

REPORT INFORMATION
  Report Type: 
  Country: None (occurrence: None)
  Receive Date: 20051223
  Receipt Date: 20051109
  Transmission Date: 20060501
  Serious: Yes (Death)
  Sender: FDA-Public Use
  Company Number: JP-ROCHE-424581

PATIENT
  Age: 68 Year
  Sex: Male

DRUGS (2)
  1. PEGASYS [Suspect]
     Indication: HEPATITIS C
     Route: 058
     Dates: start: 20050222, end: 20050930
  2. URSO [Concomitant]
     Route: 048
     Dates: start: 19981215

REACTIONS (6)
  - CARDIAC DISORDER [None]
  - CARDIO-RESPIRATORY ARREST [None]
  - CEREBROVASCULAR DISORDER [None]
  - DYSGEUSIA [None]
  - INTERSTITIAL LUNG DISEASE [None]
  - SUDDEN DEATH [None]
